FAERS Safety Report 14041648 (Version 2)
Quarter: 2017Q4

REPORT INFORMATION
  Report Type: Report from Study
  Country: None (occurrence: GB)
  Receive Date: 20171004
  Receipt Date: 20171017
  Transmission Date: 20180321
  Serious: Yes (Other)
  Sender: FDA-Public Use
  Company Number: GB-ABBVIE-17K-167-2116981-00

PATIENT
  Age: 56 Year
  Sex: Male
  Weight: 98 kg

DRUGS (8)
  1. ADCAL [Concomitant]
     Active Substance: CALCIUM CARBONATE
     Indication: BONE DISORDER
     Route: 048
     Dates: start: 20160920
  2. PENTOSAN [Concomitant]
     Active Substance: PENTOSAN POLYSULFATE SODIUM
     Indication: CROHN^S DISEASE
     Route: 048
     Dates: start: 20060926
  3. SERETIDE [Concomitant]
     Active Substance: FLUTICASONE PROPIONATE\SALMETEROL XINAFOATE
     Indication: ASTHMA
     Dosage: 1 PUFF
     Route: 055
     Dates: start: 19990101
  4. SALBUTAMOL [Concomitant]
     Active Substance: ALBUTEROL
     Indication: ASTHMA
     Route: 055
     Dates: start: 19990101
  5. ADCAL [Concomitant]
     Active Substance: CALCIUM CARBONATE
     Indication: PROPHYLAXIS
  6. PREDNISOLONE. [Concomitant]
     Active Substance: PREDNISOLONE
     Indication: CROHN^S DISEASE
     Route: 048
     Dates: start: 20160914
  7. HUMIRA [Suspect]
     Active Substance: ADALIMUMAB
     Indication: CROHN^S DISEASE
     Route: 058
     Dates: start: 20160415, end: 20170902
  8. PENTASE [Concomitant]
     Indication: CROHN^S DISEASE
     Route: 048
     Dates: start: 20060926

REACTIONS (6)
  - Pruritus generalised [Recovered/Resolved]
  - Cellulitis [Recovering/Resolving]
  - Rash [Recovered/Resolved]
  - Uveitis [Recovered/Resolved]
  - Rash macular [Recovering/Resolving]
  - Furuncle [Recovering/Resolving]

NARRATIVE: CASE EVENT DATE: 20170801
